FAERS Safety Report 14056333 (Version 8)
Quarter: 2018Q4

REPORT INFORMATION
  Report Type: Spontaneous
  Country: JP (occurrence: JP)
  Receive Date: 20171006
  Receipt Date: 20181116
  Transmission Date: 20190204
  Serious: Yes (Death, Life-Threatening, Hospitalization, Other)
  Sender: FDA-Public Use
  Company Number: JP-009507513-1705JPN000790J

PATIENT
  Age: 55 Year
  Sex: Male
  Weight: 51 kg

DRUGS (2)
  1. KEYTRUDA [Suspect]
     Active Substance: PEMBROLIZUMAB
     Dosage: 200 MG, Q3W
     Route: 041
     Dates: start: 20170430, end: 20170807
  2. KEYTRUDA [Suspect]
     Active Substance: PEMBROLIZUMAB
     Indication: LUNG ADENOCARCINOMA
     Dosage: 200 MG, Q3W
     Route: 041
     Dates: start: 20170328, end: 20170328

REACTIONS (5)
  - Diarrhoea [Recovering/Resolving]
  - White blood cell count increased [Fatal]
  - Colitis [Fatal]
  - Malignant neoplasm progression [Fatal]
  - Leukoderma [Not Recovered/Not Resolved]

NARRATIVE: CASE EVENT DATE: 2017
